FAERS Safety Report 24582688 (Version 6)
Quarter: 2025Q2

REPORT INFORMATION
  Report Type: Report from Study
  Country: US (occurrence: US)
  Receive Date: 20241106
  Receipt Date: 20250618
  Transmission Date: 20250717
  Serious: Yes (Other)
  Sender: ACADIA PHARMACEUTICALS
  Company Number: US-ACADIA PHARMACEUTICALS INC.-ACA-2024-PIM-006545

PATIENT
  Sex: Female

DRUGS (18)
  1. NUPLAZID [Suspect]
     Active Substance: PIMAVANSERIN TARTRATE
     Indication: Parkinson^s disease
     Dosage: 34 MILLIGRAM, QD
     Route: 048
     Dates: start: 20230915
  2. NUPLAZID [Suspect]
     Active Substance: PIMAVANSERIN TARTRATE
     Dosage: 34 MILLIGRAM, QD,1 CAPSULE BY MOUTH EVERY EVENING
     Route: 048
     Dates: start: 20240405
  3. ARICEPT [Concomitant]
     Active Substance: DONEPEZIL HYDROCHLORIDE
  4. AZILECT [Concomitant]
     Active Substance: RASAGILINE MESYLATE
  5. EXEMESTANE [Concomitant]
     Active Substance: EXEMESTANE
  6. ADULT MULTIVITAMIN [Concomitant]
  7. PEPCID AC [Concomitant]
     Active Substance: FAMOTIDINE
  8. PROLIA [Concomitant]
     Active Substance: DENOSUMAB
  9. PROZAC [Concomitant]
     Active Substance: FLUOXETINE HYDROCHLORIDE
  10. RYTARY [Concomitant]
     Active Substance: CARBIDOPA\LEVODOPA
  11. SENOKOT [Concomitant]
     Active Substance: SENNOSIDES
  12. VITAMIN B12 [Concomitant]
     Active Substance: CYANOCOBALAMIN
  13. VITAMIN D3 [Concomitant]
     Active Substance: CHOLECALCIFEROL
  14. ZETIA [Concomitant]
     Active Substance: EZETIMIBE
  15. TETRAHYDROAMINACRINE [Concomitant]
  16. CARBIDOPA LEVODOPA [Concomitant]
     Active Substance: CARBIDOPA\LEVODOPA
  17. CURCUMIN [Concomitant]
     Active Substance: CURCUMIN
  18. MEMANTINE [Concomitant]
     Active Substance: MEMANTINE

REACTIONS (4)
  - Parkinson^s disease [Not Recovered/Not Resolved]
  - Hallucination [Not Recovered/Not Resolved]
  - Confusional state [Unknown]
  - Product dose omission issue [Unknown]
